FAERS Safety Report 17784078 (Version 1)
Quarter: 2020Q2

REPORT INFORMATION
  Report Type: Spontaneous
  Country: US (occurrence: US)
  Receive Date: 20200513
  Receipt Date: 20200513
  Transmission Date: 20200714
  Serious: No
  Sender: FDA-Public Use
  Company Number: NVSC2020US129766

PATIENT
  Sex: Female

DRUGS (3)
  1. PROMACTA [Suspect]
     Active Substance: ELTROMBOPAG OLAMINE
     Indication: HEPATITIS B
  2. PROMACTA [Suspect]
     Active Substance: ELTROMBOPAG OLAMINE
     Indication: BONE CANCER
     Dosage: 150 MG, QD
     Route: 048
     Dates: start: 201906
  3. PROMACTA [Suspect]
     Active Substance: ELTROMBOPAG OLAMINE
     Indication: ACUTE LYMPHOCYTIC LEUKAEMIA RECURRENT

REACTIONS (1)
  - Nausea [Unknown]
